FAERS Safety Report 13469673 (Version 2)
Quarter: 2017Q2

REPORT INFORMATION
  Report Type: Spontaneous
  Country: US (occurrence: US)
  Receive Date: 20170422
  Receipt Date: 20170623
  Transmission Date: 20170830
  Serious: No
  Sender: FDA-Public Use
  Company Number: US-TEVA-758802ACC

PATIENT
  Sex: Male

DRUGS (16)
  1. DEPAKOTE [Concomitant]
     Active Substance: DIVALPROEX SODIUM
  2. EFFEXOR [Concomitant]
     Active Substance: VENLAFAXINE HYDROCHLORIDE
  3. ENABLEX [Concomitant]
     Active Substance: DARIFENACIN HYDROBROMIDE
  4. METHOTREXATE. [Concomitant]
     Active Substance: METHOTREXATE
  5. LATANOPROST. [Concomitant]
     Active Substance: LATANOPROST
  6. PREDNISONE. [Concomitant]
     Active Substance: PREDNISONE
  7. SEROQUEL [Concomitant]
     Active Substance: QUETIAPINE FUMARATE
  8. BENZTROPINE [Concomitant]
     Active Substance: BENZTROPINE
  9. FOLIC ACID. [Concomitant]
     Active Substance: FOLIC ACID
  10. OLANZAPINE. [Concomitant]
     Active Substance: OLANZAPINE
  11. SULFAMETHOXAZOLE/TRIMETHOPRIM [Concomitant]
     Active Substance: SULFAMETHOXAZOLE\TRIMETHOPRIM
  12. HYDROXYCHLOROQUINE [Concomitant]
     Active Substance: HYDROXYCHLOROQUINE
  13. MARTEN-TAB [Concomitant]
     Active Substance: ACETAMINOPHEN\BUTALBITAL
  14. HYDROCHLOROTHIAZIDE. [Concomitant]
     Active Substance: HYDROCHLOROTHIAZIDE
  15. REMERON [Concomitant]
     Active Substance: MIRTAZAPINE
  16. COPAXONE [Suspect]
     Active Substance: GLATIRAMER ACETATE
     Indication: MULTIPLE SCLEROSIS
     Route: 058
     Dates: start: 20090219

REACTIONS (1)
  - Injection site scar [Not Recovered/Not Resolved]
